FAERS Safety Report 21847058 (Version 1)
Quarter: 2023Q1

REPORT INFORMATION
  Report Type: Spontaneous
  Country: US (occurrence: US)
  Receive Date: 20230111
  Receipt Date: 20230111
  Transmission Date: 20230417
  Serious: No
  Sender: FDA-Public Use
  Company Number: US-AMGEN-USASP2023002675

PATIENT
  Sex: Female

DRUGS (1)
  1. EVENITY [Suspect]
     Active Substance: ROMOSOZUMAB-AQQG
     Indication: Product used for unknown indication
     Dosage: UNK
     Route: 065

REACTIONS (10)
  - Rash [Unknown]
  - Dysphagia [Unknown]
  - Flushing [Recovered/Resolved]
  - Paraesthesia [Unknown]
  - Cough [Unknown]
  - Sleep disorder [Unknown]
  - Gastrointestinal disorder [Unknown]
  - Palpitations [Unknown]
  - Low density lipoprotein increased [Unknown]
  - Glycosylated haemoglobin increased [Unknown]
